FAERS Safety Report 9649271 (Version 1)
Quarter: 2013Q4

REPORT INFORMATION
  Report Type: Spontaneous
  Country: JP (occurrence: JP)
  Receive Date: 20131028
  Receipt Date: 20131028
  Transmission Date: 20140711
  Serious: Yes (Death)
  Sender: FDA-Public Use
  Company Number: JP-GLAXOSMITHKLINE-B0923217A

PATIENT
  Age: 83 Year
  Sex: Male
  Weight: 39 kg

DRUGS (1)
  1. VALTREX [Suspect]
     Indication: HERPES ZOSTER
     Dosage: 1000MG THREE TIMES PER DAY
     Route: 048
     Dates: start: 20130909, end: 20130910

REACTIONS (2)
  - Pneumonia [Fatal]
  - Eyelid oedema [Recovered/Resolved]
